FAERS Safety Report 7530551-2 (Version None)
Quarter: 2011Q2

REPORT INFORMATION
  Report Type: 
  Country: None (occurrence: None)
  Receive Date: 20110607
  Receipt Date: 20110526
  Transmission Date: 20111010
  Serious: Yes (Hospitalization)
  Sender: FDA-Public Use
  Company Number: US-ASTRAZENECA-2011SE32304

PATIENT
  Age: 53 Year
  Sex: Female
  Weight: 88.5 kg

DRUGS (8)
  1. COMBIVENT [Concomitant]
  2. SABELLA [Concomitant]
  3. PRILOSEC [Concomitant]
  4. SYNTHROID [Concomitant]
  5. TRASADONE [Concomitant]
  6. KLONOPIN [Concomitant]
  7. SEROQUEL [Suspect]
     Indication: DEPRESSION
     Route: 048
  8. LISINOPRIL [Concomitant]

REACTIONS (11)
  - HEPATITIS VIRAL [None]
  - BASEDOW'S DISEASE [None]
  - ASTHMA [None]
  - PNEUMONIA VIRAL [None]
  - DEPRESSION [None]
  - DRUG INEFFECTIVE [None]
  - HYPERTENSION [None]
  - FIBROMYALGIA [None]
  - ADDISON'S DISEASE [None]
  - BRONCHITIS [None]
  - SYNCOPE [None]
